FAERS Safety Report 7670340-1 (Version None)
Quarter: 2011Q3

REPORT INFORMATION
  Report Type: 
  Country: None (occurrence: None)
  Receive Date: 20110809
  Receipt Date: 20110728
  Transmission Date: 20111222
  Serious: No
  Sender: FDA-Public Use
  Company Number: US-BIOGENIDEC-2011BI008838

PATIENT
  Age: 52 Year
  Sex: Female

DRUGS (4)
  1. TYSABRI [Suspect]
     Indication: MULTIPLE SCLEROSIS
     Route: 042
     Dates: start: 20101025
  2. NASAL SPRAY [Concomitant]
     Indication: MIGRAINE
  3. IMITREX [Concomitant]
     Indication: MIGRAINE
  4. PILLS (NOS) [Concomitant]
     Indication: MIGRAINE

REACTIONS (4)
  - MUSCLE TWITCHING [None]
  - FATIGUE [None]
  - MIGRAINE [None]
  - VISUAL IMPAIRMENT [None]
